FAERS Safety Report 6903383-3 (Version None)
Quarter: 2010Q3

REPORT INFORMATION
  Report Type: 
  Country: None (occurrence: None)
  Receive Date: 20100803
  Receipt Date: 20080926
  Transmission Date: 20110219
  Serious: No
  Sender: FDA-Public Use
  Company Number: US-PFIZER INC-2008082051

PATIENT
  Sex: Male
  Weight: 77.56 kg

DRUGS (5)
  1. LYRICA [Suspect]
     Indication: SLEEP DISORDER
     Dates: start: 20080925
  2. LYRICA [Suspect]
     Indication: GASTRIC DISORDER
  3. DETROL LA [Concomitant]
  4. ZOCOR [Concomitant]
  5. TIMOLOL MALEATE [Concomitant]

REACTIONS (1)
  - SOMNOLENCE [None]
